FAERS Safety Report 12281614 (Version 1)
Quarter: 2016Q2

REPORT INFORMATION
  Report Type: Spontaneous
  Country: US (occurrence: US)
  Receive Date: 20160419
  Receipt Date: 20160419
  Transmission Date: 20160815
  Serious: No
  Sender: FDA-Public Use
  Company Number: US-GLAXOSMITHKLINE-US2016GSK046627

PATIENT
  Age: 86 Year
  Sex: Male

DRUGS (5)
  1. ALBUTEROL. [Concomitant]
     Active Substance: ALBUTEROL
  2. BUDESONIDE. [Concomitant]
     Active Substance: BUDESONIDE
  3. INCRUSE ELLIPTA [Suspect]
     Active Substance: UMECLIDINIUM BROMIDE
     Indication: CHRONIC OBSTRUCTIVE PULMONARY DISEASE
  4. INCRUSE ELLIPTA [Suspect]
     Active Substance: UMECLIDINIUM BROMIDE
     Indication: EMPHYSEMA
     Dosage: 1 PUFF(S), QD
     Route: 055
     Dates: start: 20160401
  5. IPRATROPIUM [Concomitant]
     Active Substance: IPRATROPIUM

REACTIONS (3)
  - Drug dose omission [Unknown]
  - Sensory disturbance [Not Recovered/Not Resolved]
  - Nausea [Not Recovered/Not Resolved]

NARRATIVE: CASE EVENT DATE: 20160401
